FAERS Safety Report 14679724 (Version 3)
Quarter: 2018Q2

REPORT INFORMATION
  Report Type: Report from Study
  Country: US (occurrence: US)
  Receive Date: 20180326
  Receipt Date: 20180425
  Transmission Date: 20180711
  Serious: Yes (Other)
  Sender: FDA-Public Use
  Company Number: US-JNJFOC-20180333740

PATIENT
  Age: 76 Year
  Sex: Female

DRUGS (15)
  1. IMBRUVICA [Suspect]
     Active Substance: IBRUTINIB
     Indication: CHRONIC LYMPHOCYTIC LEUKAEMIA
     Route: 048
     Dates: start: 20180308, end: 20180408
  2. IMBRUVICA [Suspect]
     Active Substance: IBRUTINIB
     Indication: CHRONIC LYMPHOCYTIC LEUKAEMIA
     Route: 048
     Dates: start: 20180311
  3. LISINOPRIL. [Concomitant]
     Active Substance: LISINOPRIL
  4. FLONASE [Concomitant]
     Active Substance: FLUTICASONE PROPIONATE
  5. ESTRACE [Concomitant]
     Active Substance: ESTRADIOL
  6. FISH OIL [Concomitant]
     Active Substance: FISH OIL
  7. PRILOSEC [Concomitant]
     Active Substance: OMEPRAZOLE MAGNESIUM
  8. MAGNESIUM [Concomitant]
     Active Substance: MAGNESIUM
  9. PREDNISONE. [Concomitant]
     Active Substance: PREDNISONE
  10. NEURONTIN [Concomitant]
     Active Substance: GABAPENTIN
  11. ASPIRIN. [Concomitant]
     Active Substance: ASPIRIN
  12. CALCIUM [Concomitant]
     Active Substance: CALCIUM
  13. EPIPEN [Concomitant]
     Active Substance: EPINEPHRINE
  14. DIPHENHYDRAMINE. [Concomitant]
     Active Substance: DIPHENHYDRAMINE
  15. NOVOLOG [Concomitant]
     Active Substance: INSULIN ASPART

REACTIONS (6)
  - Postmenopausal haemorrhage [Recovering/Resolving]
  - Skin sensitisation [Unknown]
  - Anal haemorrhage [Recovering/Resolving]
  - Skin ulcer [Unknown]
  - Bone pain [Unknown]
  - Myalgia [Unknown]

NARRATIVE: CASE EVENT DATE: 201803
